FAERS Safety Report 20934109 (Version 3)
Quarter: 2022Q4

REPORT INFORMATION
  Report Type: Report from Study
  Country: US (occurrence: US)
  Receive Date: 20220608
  Receipt Date: 20221205
  Transmission Date: 20230112
  Serious: Yes (Other)
  Sender: FDA-Public Use
  Company Number: US-NOVARTISPH-NVSC2022US129937

PATIENT
  Age: 77 Year
  Sex: Female
  Weight: 68.04 kg

DRUGS (7)
  1. PIQRAY [Suspect]
     Active Substance: ALPELISIB
     Indication: Breast cancer metastatic
     Dosage: 300 MG, QD
     Route: 048
     Dates: start: 20220330, end: 20220411
  2. PIQRAY [Suspect]
     Active Substance: ALPELISIB
     Indication: Breast cancer
     Dosage: 200 MG, QD
     Route: 048
     Dates: start: 20220330
  3. PIQRAY [Suspect]
     Active Substance: ALPELISIB
     Dosage: 150 MG, QD
     Route: 048
     Dates: start: 20220418, end: 20220510
  4. PIQRAY [Suspect]
     Active Substance: ALPELISIB
     Dosage: 250 MG, QD
     Route: 048
     Dates: start: 20220511
  5. PIQRAY [Suspect]
     Active Substance: ALPELISIB
     Dosage: 150 MG, QD
     Route: 065
  6. FULVESTRANT [Concomitant]
     Active Substance: FULVESTRANT
     Indication: Product used for unknown indication
     Dosage: 500 MG, Q4W
     Route: 030
  7. AMILORIDE [Concomitant]
     Active Substance: AMILORIDE
     Indication: Product used for unknown indication
     Dosage: 5 MG, QD
     Route: 065

REACTIONS (6)
  - Hyperkalaemia [Recovered/Resolved]
  - Nausea [Recovering/Resolving]
  - Vomiting [Recovering/Resolving]
  - Hyperglycaemia [Recovering/Resolving]
  - Rash [Recovered/Resolved]
  - Diarrhoea [Unknown]

NARRATIVE: CASE EVENT DATE: 20220401
